FAERS Safety Report 5089315-4 (Version None)
Quarter: 2006Q3

REPORT INFORMATION
  Report Type: 
  Country: None (occurrence: None)
  Receive Date: 20060822
  Receipt Date: 20060731
  Transmission Date: 20061208
  Serious: Yes (Other)
  Sender: FDA-Public Use
  Company Number: US200608000199

PATIENT
  Age: 70 Year
  Sex: Female

DRUGS (2)
  1. FORTEO [Suspect]
     Dosage: 3/W
     Dates: start: 20060701
  2. FORTEO PEN ( FORTEO PEN) PEN, DISPOSABLE [Concomitant]

REACTIONS (10)
  - ANXIETY [None]
  - BLOOD PRESSURE FLUCTUATION [None]
  - DIZZINESS [None]
  - HEADACHE [None]
  - HEART RATE INCREASED [None]
  - LOSS OF CONSCIOUSNESS [None]
  - MUSCLE SPASMS [None]
  - NAUSEA [None]
  - NECK PAIN [None]
  - PERSONALITY CHANGE [None]
